FAERS Safety Report 15223480 (Version 1)
Quarter: 2018Q3

REPORT INFORMATION
  Report Type: Spontaneous
  Country: US (occurrence: US)
  Receive Date: 20180731
  Receipt Date: 20180731
  Transmission Date: 20181010
  Serious: No
  Sender: FDA-Public Use
  Company Number: US-ENDO PHARMACEUTICALS INC-2018-040138

PATIENT
  Sex: Male

DRUGS (2)
  1. TESTOPEL [Suspect]
     Active Substance: TESTOSTERONE
     Indication: PRODUCT USED FOR UNKNOWN INDICATION
     Dosage: 450 MG, (SIX PELLETS)
     Route: 058
     Dates: start: 201801
  2. TESTOPEL [Suspect]
     Active Substance: TESTOSTERONE
     Dosage: 1050 MG, (14 PELLETS) EVERY FOUR TO SIX MONTHS
     Route: 058

REACTIONS (3)
  - Inappropriate schedule of drug administration [Not Recovered/Not Resolved]
  - Drug ineffective [Not Recovered/Not Resolved]
  - Prescribed overdose [Unknown]

NARRATIVE: CASE EVENT DATE: 2018
